FAERS Safety Report 4709627-0 (Version None)
Quarter: 2005Q3

REPORT INFORMATION
  Report Type: 
  Country: None (occurrence: None)
  Receive Date: 20050706
  Receipt Date: 20050706
  Transmission Date: 20060218
  Serious: Yes (Hospitalization)
  Sender: FDA-Public Use
  Company Number: None

PATIENT
  Age: 50 Year
  Sex: Female
  Weight: 76.2043 kg

DRUGS (1)
  1. GAMMAR [Suspect]
     Dosage: 30 GRAMS    IV    INTRAVENOU
     Route: 042
     Dates: start: 20050623, end: 20050623

REACTIONS (4)
  - CHEST PAIN [None]
  - DIZZINESS [None]
  - RESTLESSNESS [None]
  - THROAT TIGHTNESS [None]
